FAERS Safety Report 20556850 (Version 1)
Quarter: 2022Q1

REPORT INFORMATION
  Report Type: Spontaneous
  Country: US (occurrence: US)
  Receive Date: 20220307
  Receipt Date: 20220307
  Transmission Date: 20220423
  Serious: Yes (Hospitalization, Other)
  Sender: FDA-Public Use
  Company Number: US-CIPLA LTD.-2022US01451

PATIENT

DRUGS (2)
  1. LAMOTRIGINE [Suspect]
     Active Substance: LAMOTRIGINE
     Indication: Bipolar II disorder
     Dosage: 50 MILLIGRAM PER WEEK (TITRATE THE DOSE BY 50 MG EVERY WEEK UNTIL THE PATIENT REACHED 200 MG)
     Route: 065
  2. LAMOTRIGINE [Suspect]
     Active Substance: LAMOTRIGINE
     Dosage: 200 MILLIGRAM, BID
     Route: 065

REACTIONS (7)
  - Epstein-Barr virus infection reactivation [Recovering/Resolving]
  - Hepatosplenomegaly [Recovering/Resolving]
  - Acute kidney injury [Recovering/Resolving]
  - Anuria [Recovering/Resolving]
  - Drug reaction with eosinophilia and systemic symptoms [Recovering/Resolving]
  - Transaminases increased [Recovered/Resolved]
  - Thrombocytopenia [Recovered/Resolved]
